FAERS Safety Report 8554349-1 (Version None)
Quarter: 2012Q3

REPORT INFORMATION
  Report Type: 
  Country: None (occurrence: None)
  Receive Date: 20120731
  Receipt Date: 20120717
  Transmission Date: 20120928
  Serious: Yes (Hospitalization, Other)
  Sender: FDA-Public Use
  Company Number: FR-ROCHE-1074260

PATIENT
  Sex: Male
  Weight: 65 kg

DRUGS (3)
  1. PANTOPRAZOLE SODIUM [Concomitant]
     Indication: DUODENAL ULCER
     Route: 048
     Dates: start: 20120410
  2. ZELBORAF [Suspect]
     Indication: MALIGNANT MELANOMA STAGE IV
     Route: 048
     Dates: start: 20120504, end: 20120519
  3. TRAMADOL HYDROCHLORIDE [Concomitant]
     Indication: PAIN
     Route: 048
     Dates: start: 20120410

REACTIONS (4)
  - PHOTOSENSITIVITY REACTION [None]
  - RENAL FAILURE ACUTE [None]
  - EOSINOPHILIA [None]
  - TOXIC SKIN ERUPTION [None]
